FAERS Safety Report 6519992-X (Version None)
Quarter: 2009Q4

REPORT INFORMATION
  Report Type: 
  Country: None (occurrence: None)
  Receive Date: 20091229
  Receipt Date: 20091217
  Transmission Date: 20100525
  Serious: No
  Sender: FDA-Public Use
  Company Number: US-JNJFOC-20091206394

PATIENT
  Sex: Male
  Weight: 90.72 kg

DRUGS (6)
  1. DURAGESIC-100 [Suspect]
     Indication: PAIN
     Route: 062
  2. DURAGESIC-100 [Suspect]
     Route: 062
  3. FENTORA [Concomitant]
     Indication: PAIN
     Route: 048
  4. MUSCLE RELAXANT [Concomitant]
     Indication: MYALGIA
     Route: 065
  5. ANTIDEPRESSANT [Concomitant]
     Indication: DEPRESSION
     Route: 065
  6. BLOOD PRESSURE MEDICATION NOS [Concomitant]
     Indication: BLOOD PRESSURE
     Route: 065

REACTIONS (1)
  - WRONG TECHNIQUE IN DRUG USAGE PROCESS [None]
